FAERS Safety Report 18401766 (Version 1)
Quarter: 2020Q4

REPORT INFORMATION
  Report Type: Spontaneous
  Country: US (occurrence: US)
  Receive Date: 20201019
  Receipt Date: 20201019
  Transmission Date: 20210114
  Serious: Yes (Death, Other)
  Sender: FDA-Public Use
  Company Number: US-PURDUE-USA-2020-0168006

PATIENT
  Age: 29 Year
  Sex: Male

DRUGS (1)
  1. OXYCONTIN [Suspect]
     Active Substance: OXYCODONE HYDROCHLORIDE
     Indication: PRODUCT USED FOR UNKNOWN INDICATION
     Dosage: UNK
     Route: 048
     Dates: start: 2014

REACTIONS (13)
  - Hepatomegaly [Unknown]
  - Pain [Unknown]
  - Overdose [Unknown]
  - Drug abuse [Unknown]
  - Thyroidectomy [Unknown]
  - Emotional distress [Unknown]
  - Toxicity to various agents [Fatal]
  - Pulmonary oedema [Unknown]
  - Drug withdrawal syndrome [Unknown]
  - Drug dependence [Unknown]
  - Left ventricular hypertrophy [Unknown]
  - Pulmonary congestion [Unknown]
  - Brain oedema [Unknown]

NARRATIVE: CASE EVENT DATE: 20160409
